FAERS Safety Report 4778005-0 (Version None)
Quarter: 2005Q3

REPORT INFORMATION
  Report Type: 
  Country: None (occurrence: None)
  Receive Date: 20050921
  Receipt Date: 20050906
  Transmission Date: 20060218
  Serious: Yes (Death, Hospitalization, Other)
  Sender: FDA-Public Use
  Company Number: DE_050916879

PATIENT
  Age: 74 Year
  Sex: Female

DRUGS (4)
  1. GEMZAR [Suspect]
     Indication: PANCREATIC CARCINOMA
     Dosage: 1000 MG/M2 ONCE PER WEEK FOR THREE WEEKS
     Dates: start: 20050401, end: 20050715
  2. LEVOTHYROXINE SODIUM [Concomitant]
  3. KREON (PANCREATIN) [Concomitant]
  4. PANTOPRAZOLE SODIUM [Concomitant]

REACTIONS (22)
  - ANAEMIA [None]
  - AORTIC ATHEROSCLEROSIS [None]
  - AORTIC VALVE INCOMPETENCE [None]
  - CARBOHYDRATE ANTIGEN 19-9 INCREASED [None]
  - CARDIAC FAILURE [None]
  - CARDIOMEGALY [None]
  - CHILLS [None]
  - DYSPNOEA [None]
  - ELECTROCARDIOGRAM POOR R-WAVE PROGRESSION [None]
  - ERUCTATION [None]
  - GENERAL PHYSICAL HEALTH DETERIORATION [None]
  - HYPERTENSION [None]
  - MITRAL VALVE INCOMPETENCE [None]
  - OEDEMA PERIPHERAL [None]
  - PHOTODERMATOSIS [None]
  - PLEURAL EFFUSION [None]
  - PULMONARY OEDEMA [None]
  - PYREXIA [None]
  - SILENT MYOCARDIAL INFARCTION [None]
  - THERAPY NON-RESPONDER [None]
  - TREMOR [None]
  - VENTRICULAR DYSFUNCTION [None]
